FAERS Safety Report 9514998 (Version 2)
Quarter: 2013Q3

REPORT INFORMATION
  Report Type: Spontaneous
  Country: GB (occurrence: GB)
  Receive Date: 20130911
  Receipt Date: 20130926
  Transmission Date: 20140515
  Serious: No
  Sender: FDA-Public Use
  Company Number: GB-JNJFOC-20130903849

PATIENT
  Sex: Female

DRUGS (1)
  1. DUROGESIC DTRANS [Suspect]
     Indication: ACCIDENTAL EXPOSURE TO PRODUCT
     Route: 062

REACTIONS (3)
  - Accidental exposure to product [Unknown]
  - Product quality issue [Unknown]
  - Wrong technique in drug usage process [Unknown]
